FAERS Safety Report 6732160-1 (Version None)
Quarter: 2010Q2

REPORT INFORMATION
  Report Type: 
  Country: None (occurrence: None)
  Receive Date: 20100519
  Receipt Date: 20100511
  Transmission Date: 20101027
  Serious: Yes (Hospitalization)
  Sender: FDA-Public Use
  Company Number: A0779045A

PATIENT
  Age: 57 Year
  Sex: Female
  Weight: 77.3 kg

DRUGS (6)
  1. AVANDIA [Suspect]
     Indication: DIABETES MELLITUS
     Dosage: 8MG PER DAY
     Route: 048
     Dates: start: 20020129, end: 20070101
  2. HUMALOG [Concomitant]
  3. LIPITOR [Concomitant]
  4. AVAPRO [Concomitant]
  5. FOSAMAX [Concomitant]
  6. AVELOX [Concomitant]

REACTIONS (5)
  - ANGINA PECTORIS [None]
  - CARDIAC FAILURE CONGESTIVE [None]
  - CORONARY ARTERY DISEASE [None]
  - MYOCARDIAL ISCHAEMIA [None]
  - TRICUSPID VALVE INCOMPETENCE [None]
